FAERS Safety Report 12924520 (Version 1)
Quarter: 2016Q4

REPORT INFORMATION
  Report Type: Spontaneous
  Country: US (occurrence: US)
  Receive Date: 20161108
  Receipt Date: 20161108
  Transmission Date: 20170207
  Serious: Yes (Other)
  Sender: FDA-Public Use
  Company Number: US-BAUSCH-BL-2016-027076

PATIENT
  Sex: Male

DRUGS (1)
  1. XENAZINE [Suspect]
     Active Substance: TETRABENAZINE
     Indication: CHOREA
     Route: 065
     Dates: start: 201503

REACTIONS (7)
  - Vomiting [Unknown]
  - Adverse event [Unknown]
  - Urinary retention [Unknown]
  - Urinary incontinence [Unknown]
  - Drug ineffective [Unknown]
  - Dyspnoea [Unknown]
  - Sedation [Unknown]
